FAERS Safety Report 15109559 (Version 4)
Quarter: 2018Q4

REPORT INFORMATION
  Report Type: Report from Study
  Country: BR (occurrence: BR)
  Receive Date: 20180705
  Receipt Date: 20181210
  Transmission Date: 20190204
  Serious: Yes (Life-Threatening, Other)
  Sender: FDA-Public Use
  Company Number: PHHY2016BR127610

PATIENT
  Age: 86 Year
  Sex: Female
  Weight: 60 kg

DRUGS (5)
  1. ACLASTA [Suspect]
     Active Substance: ZOLEDRONIC ACID
     Dosage: 1 DF, Q12MO
     Route: 042
     Dates: start: 20170809, end: 20170809
  2. LOSARTAN. [Concomitant]
     Active Substance: LOSARTAN
     Indication: HYPERTENSION
     Dosage: 1 DF, BID (15 YEARS AGO)
     Route: 048
  3. ACLASTA [Suspect]
     Active Substance: ZOLEDRONIC ACID
     Indication: OSTEITIS DEFORMANS
     Dosage: 1 DF, Q12MO
     Route: 042
     Dates: start: 20160808
  4. VITAMIN D [Concomitant]
     Active Substance: CHOLECALCIFEROL
     Indication: OSTEITIS DEFORMANS
     Dosage: 1 DF, UNK (EVERY FRIDAY) (6 MONTHS AGO)
     Route: 065
  5. HYDROCHOROTHIAZIDE [Concomitant]
     Active Substance: HYDROCHLOROTHIAZIDE
     Indication: HYPERTENSION
     Dosage: 1 DF, QD (6 MONTHS AGO)
     Route: 048

REACTIONS (19)
  - Palpitations [Recovered/Resolved]
  - Bone disorder [Unknown]
  - Pyrexia [Recovered/Resolved]
  - Concomitant disease aggravated [Unknown]
  - Arthralgia [Not Recovered/Not Resolved]
  - Upper limb fracture [Recovering/Resolving]
  - Sluggishness [Unknown]
  - Chest pain [Unknown]
  - Fall [Recovering/Resolving]
  - Confusional state [Recovered/Resolved]
  - Dizziness [Recovered/Resolved]
  - Hand deformity [Not Recovered/Not Resolved]
  - Pain [Recovering/Resolving]
  - Headache [Recovered/Resolved]
  - Tachycardia [Recovered/Resolved]
  - Erythema [Recovered/Resolved]
  - Malaise [Recovered/Resolved]
  - Asthenia [Not Recovered/Not Resolved]
  - Dyspnoea [Recovered/Resolved]

NARRATIVE: CASE EVENT DATE: 20160808
